FAERS Safety Report 4446741-1 (Version None)
Quarter: 2004Q3

REPORT INFORMATION
  Report Type: 
  Country: None (occurrence: None)
  Receive Date: 20040910
  Receipt Date: 20040824
  Transmission Date: 20050211
  Serious: Yes (Hospitalization)
  Sender: FDA-Public Use
  Company Number: 04P-028-0271541-00

PATIENT
  Age: 38 Year
  Sex: Female

DRUGS (3)
  1. KELATRA SOFT GELATIN CAPSULES (LOPINAVIR/RITONAVIR) [Suspect]
     Dosage: 6 CAPSULE, 1 IN 1 D, PER ORAL
     Route: 048
     Dates: start: 20031029
  2. LAMIVUDINE [Concomitant]
  3. TENOFOVIR [Concomitant]

REACTIONS (3)
  - ARTHRALGIA [None]
  - CELLULITIS [None]
  - MUSCLE ABSCESS [None]
